FAERS Safety Report 6480129-7 (Version None)
Quarter: 2009Q4

REPORT INFORMATION
  Report Type: 
  Country: None (occurrence: None)
  Receive Date: 20091208
  Receipt Date: 20091124
  Transmission Date: 20100525
  Serious: Yes (Other)
  Sender: FDA-Public Use
  Company Number: PHHY2009JP50945

PATIENT
  Sex: Male
  Weight: 3.1 kg

DRUGS (15)
  1. NEORAL [Suspect]
     Indication: PUSTULAR PSORIASIS
     Dosage: MATERNAL DOSE:125 MG DAILY
     Route: 064
     Dates: end: 20090116
  2. NEORAL [Suspect]
     Dosage: MATERNAL DOSE:200 MG DAILY
     Route: 064
     Dates: start: 20090117, end: 20090119
  3. NEORAL [Suspect]
     Dosage: MATERNAL DOSE:225 MG DAILY
     Route: 064
     Dates: start: 20090120, end: 20090204
  4. NEORAL [Suspect]
     Dosage: MATERNAL DOSE:275 MG DAILY
     Route: 064
     Dates: start: 20090205, end: 20090210
  5. NEORAL [Suspect]
     Dosage: MATERNAL DOSE:225 MG DAILY
     Route: 064
     Dates: start: 20090211
  6. PREDONINE [Suspect]
     Indication: PUSTULAR PSORIASIS
     Dosage: MATERNAL DOSE:30 MG DAILY
     Route: 064
     Dates: start: 20090124, end: 20090128
  7. PREDONINE [Suspect]
     Dosage: MATERNAL DOSE:50 MG DAILY
     Route: 064
     Dates: start: 20090129, end: 20090204
  8. PREDONINE [Suspect]
     Dosage: MATERNAL DOSE:40 MG DAILY
     Route: 064
     Dates: start: 20090205, end: 20090211
  9. PREDONINE [Suspect]
     Dosage: MATERNAL DOSE:35 MG DAILY
     Route: 064
     Dates: start: 20090212
  10. PREDONINE [Suspect]
     Dosage: MATERNAL DOSE:10 MG DAILY
     Route: 064
     Dates: start: 20090501, end: 20090909
  11. GASTER D [Concomitant]
     Dosage: MATERNAL DOSE: 20 MG
     Route: 064
     Dates: start: 20090129, end: 20090728
  12. MUCOSTA [Concomitant]
     Dosage: MATERNAL DOSE: 300 MG
     Route: 064
     Dates: start: 20090124
  13. FERROMIA [Concomitant]
     Dosage: MATERNAL DOSE: 100 MG
     Route: 064
     Dates: start: 20081125, end: 20090604
  14. FOLIAMIN [Concomitant]
     Dosage: MATERNAL DOSE: 10 MG
     Route: 064
     Dates: start: 20081125, end: 20090604
  15. METHYCOBAL [Concomitant]
     Dosage: MATERNAL DOSE: 1000 MICROGRAM
     Route: 064
     Dates: start: 20081125, end: 20090604

REACTIONS (2)
  - DRUG EXPOSURE DURING PREGNANCY [None]
  - FOETAL GROWTH RETARDATION [None]
